FAERS Safety Report 6171987-4 (Version None)
Quarter: 2009Q2

REPORT INFORMATION
  Report Type: 
  Country: None (occurrence: None)
  Receive Date: 20090429
  Receipt Date: 20090427
  Transmission Date: 20091009
  Serious: Yes (Death, Hospitalization, Other)
  Sender: FDA-Public Use
  Company Number: PHHY2009JP12202

PATIENT
  Sex: Male
  Weight: 61 kg

DRUGS (9)
  1. DIOVAN T30230+TAB+HY [Suspect]
     Dosage: 80 MG, QD
     Route: 048
     Dates: start: 20080215, end: 20080305
  2. ATELEC [Concomitant]
     Indication: HYPERTENSION
     Dosage: 10 MG
     Route: 048
     Dates: start: 20070615
  3. ASPIRIN [Concomitant]
     Dosage: 100 MG
     Route: 048
     Dates: start: 20070613
  4. ALOSITOL [Concomitant]
     Dosage: 100 MG
     Route: 048
     Dates: start: 20070613
  5. HARNAL [Concomitant]
     Dosage: 0.1 MG
     Route: 048
     Dates: start: 20080108
  6. UBRETID [Concomitant]
     Dosage: 5 MG
     Route: 048
     Dates: start: 20080108
  7. DOGMATYL [Concomitant]
     Dosage: 100 MG
     Route: 048
     Dates: start: 20071227
  8. RESLIN [Concomitant]
     Dosage: 25 MG
     Route: 048
     Dates: start: 20071227
  9. LENDORMIN [Concomitant]
     Dosage: 0.25 MG
     Route: 048
     Dates: start: 20071227

REACTIONS (6)
  - BLOOD CREATININE INCREASED [None]
  - BLOOD UREA INCREASED [None]
  - DISEASE RECURRENCE [None]
  - HAEMATURIA [None]
  - LARGE INTESTINE CARCINOMA [None]
  - RENAL FAILURE [None]
